FAERS Safety Report 13473225 (Version 1)
Quarter: 2017Q2

REPORT INFORMATION
  Report Type: Spontaneous
  Country: US (occurrence: US)
  Receive Date: 20170424
  Receipt Date: 20170424
  Transmission Date: 20170830
  Serious: No
  Sender: FDA-Public Use
  Company Number: US-009507513-1704USA005138

PATIENT
  Age: 52 Year
  Sex: Female

DRUGS (2)
  1. ZOSTAVAX [Suspect]
     Active Substance: VARICELLA-ZOSTER VIRUS STRAIN OKA/MERCK LIVE ANTIGEN
     Indication: PROPHYLAXIS
     Route: 058
     Dates: start: 20170407, end: 20170407
  2. STERILE DILUENT [Suspect]
     Active Substance: WATER
     Dosage: UNK
     Dates: start: 20170407, end: 20170407

REACTIONS (11)
  - Hyperhidrosis [Not Recovered/Not Resolved]
  - Injection site vesicles [Not Recovered/Not Resolved]
  - Injection site swelling [Not Recovered/Not Resolved]
  - Chills [Not Recovered/Not Resolved]
  - Injection site pain [Not Recovered/Not Resolved]
  - Feeding disorder [Not Recovered/Not Resolved]
  - Nausea [Not Recovered/Not Resolved]
  - Erythema [Not Recovered/Not Resolved]
  - Injection site rash [Not Recovered/Not Resolved]
  - Injection site erythema [Not Recovered/Not Resolved]
  - Injection site warmth [Not Recovered/Not Resolved]

NARRATIVE: CASE EVENT DATE: 201704
